FAERS Safety Report 7036063-7 (Version None)
Quarter: 2010Q4

REPORT INFORMATION
  Report Type: 
  Country: None (occurrence: None)
  Receive Date: 20101007
  Receipt Date: 20101007
  Transmission Date: 20110411
  Serious: Yes (Hospitalization)
  Sender: FDA-Public Use
  Company Number: None

PATIENT
  Age: 49 Year
  Sex: Male
  Weight: 157.9 kg

DRUGS (1)
  1. CITALOPRAM HYDROBROMIDE [Suspect]
     Indication: SCHIZOAFFECTIVE DISORDER
     Dosage: 40MG BID PO
     Route: 048

REACTIONS (5)
  - AGITATION [None]
  - HYPERHIDROSIS [None]
  - MENTAL STATUS CHANGES [None]
  - TACHYCARDIA [None]
  - TREMOR [None]
